FAERS Safety Report 7649119-2 (Version None)
Quarter: 2011Q3

REPORT INFORMATION
  Report Type: 
  Country: None (occurrence: None)
  Receive Date: 20110802
  Receipt Date: 20110721
  Transmission Date: 20111222
  Serious: Yes (Hospitalization)
  Sender: FDA-Public Use
  Company Number: US-JNJFOC-20110709520

PATIENT
  Sex: Male
  Weight: 81.65 kg

DRUGS (5)
  1. LUNESTA [Concomitant]
     Indication: SLEEP DISORDER
     Route: 048
  2. LAMICTAL [Concomitant]
     Indication: SLEEP DISORDER
     Route: 048
  3. REMICADE [Suspect]
     Indication: PSORIASIS
     Route: 042
     Dates: start: 20070101, end: 20110101
  4. REMICADE [Suspect]
     Indication: PSORIATIC ARTHROPATHY
     Route: 042
     Dates: start: 20070101, end: 20110101
  5. TRAZODONE HYDROCHLORIDE [Concomitant]
     Route: 048

REACTIONS (1)
  - ACUTE DISSEMINATED ENCEPHALOMYELITIS [None]
